FAERS Safety Report 25292071 (Version 1)
Quarter: 2025Q2

REPORT INFORMATION
  Report Type: Spontaneous
  Country: US (occurrence: US)
  Receive Date: 20250510
  Receipt Date: 20250510
  Transmission Date: 20250716
  Serious: No
  Sender: SANOFI AVENTIS
  Company Number: US-SA-2025SA123299

PATIENT
  Age: 6 Year
  Sex: Male
  Weight: 42.6 kg

DRUGS (5)
  1. DUPIXENT [Suspect]
     Active Substance: DUPILUMAB
     Indication: Dermatitis atopic
     Route: 058
  2. CHILDREN CLARITIN ALLERGY [Concomitant]
     Active Substance: LORATADINE
  3. TRIAMCINOLONE ACETONIDE [Concomitant]
     Active Substance: TRIAMCINOLONE ACETONIDE
  4. HYDROCORTISONE [Concomitant]
     Active Substance: HYDROCORTISONE
  5. MUPIROCIN [Concomitant]
     Active Substance: MUPIROCIN

REACTIONS (5)
  - Dyspnoea [Recovering/Resolving]
  - Oropharyngeal discomfort [Unknown]
  - Eye pain [Unknown]
  - Oropharyngeal pain [Unknown]
  - Rash [Unknown]
